FAERS Safety Report 9155302 (Version 2)
Quarter: 2013Q2

REPORT INFORMATION
  Report Type: Spontaneous
  Country: IT (occurrence: IT)
  Receive Date: 20130311
  Receipt Date: 20130520
  Transmission Date: 20140414
  Serious: Yes (Other)
  Sender: FDA-Public Use
  Company Number: IT-BRISTOL-MYERS SQUIBB COMPANY-17437856

PATIENT
  Age: 47 Year
  Sex: Female

DRUGS (2)
  1. COUMADIN TABS 5 MG [Suspect]
     Indication: EMBOLISM VENOUS
     Dosage: 10MAY13
     Route: 048
     Dates: start: 20090407
  2. COUMADIN TABS 5 MG [Suspect]
     Indication: DEEP VEIN THROMBOSIS
     Dosage: 10MAY13
     Route: 048
     Dates: start: 20090407

REACTIONS (3)
  - Uterine disorder [Unknown]
  - Genital haemorrhage [Recovering/Resolving]
  - Haematoma [Recovering/Resolving]
